FAERS Safety Report 7519481-X (Version None)
Quarter: 2011Q2

REPORT INFORMATION
  Report Type: 
  Country: None (occurrence: None)
  Receive Date: 20110602
  Receipt Date: 20110523
  Transmission Date: 20111010
  Serious: Yes (Hospitalization, Disabling, Other)
  Sender: FDA-Public Use
  Company Number: US-MERCK-1009USA00853

PATIENT
  Age: 83 Year
  Sex: Female

DRUGS (2)
  1. LIPITOR [Concomitant]
     Indication: BLOOD CHOLESTEROL
     Route: 048
     Dates: start: 19930101
  2. FOSAMAX [Suspect]
     Indication: OSTEOPOROSIS
     Route: 048
     Dates: start: 20050420, end: 20071128

REACTIONS (20)
  - ARTERIOSCLEROSIS CORONARY ARTERY [None]
  - ATRIAL FIBRILLATION [None]
  - VENTRICULAR HYPERTROPHY [None]
  - CHEST PAIN [None]
  - VERTIGO [None]
  - RHEUMATOID ARTHRITIS [None]
  - RENAL DISORDER [None]
  - TRICUSPID VALVE INCOMPETENCE [None]
  - GINGIVITIS [None]
  - URINARY TRACT INFECTION FUNGAL [None]
  - NODULE [None]
  - CARDIOMYOPATHY [None]
  - DYSPNOEA EXERTIONAL [None]
  - DYSPNOEA [None]
  - OSTEONECROSIS OF JAW [None]
  - ADVERSE EVENT [None]
  - BONE LOSS [None]
  - PERIODONTAL DISEASE [None]
  - COUGH [None]
  - AORTIC VALVE INCOMPETENCE [None]
